FAERS Safety Report 13011020 (Version 16)
Quarter: 2020Q2

REPORT INFORMATION
  Report Type: Report from Study
  Country: US (occurrence: US)
  Receive Date: 20161208
  Receipt Date: 20200625
  Transmission Date: 20200713
  Serious: Yes (Hospitalization, Other)
  Sender: FDA-Public Use
  Company Number: US-ACTELION-A-NJ2016-146472

PATIENT
  Age: 55 Year
  Sex: Female
  Weight: 109.3 kg

DRUGS (10)
  1. VELETRI [Suspect]
     Active Substance: EPOPROSTENOL
     Dosage: 32 NG/KG, PER MIN
     Route: 042
  2. VELETRI [Suspect]
     Active Substance: EPOPROSTENOL
     Dosage: 34 NG/KG, PER MIN
     Route: 042
  3. VELETRI [Suspect]
     Active Substance: EPOPROSTENOL
     Dosage: 29.1 NG/KG, PER MIN
     Route: 042
  4. VELETRI [Suspect]
     Active Substance: EPOPROSTENOL
     Dosage: UNK
     Route: 042
     Dates: start: 20160712
  5. VELETRI [Suspect]
     Active Substance: EPOPROSTENOL
     Dosage: 36 NG/KG, PER MIN
     Route: 042
  6. ADCIRCA [Concomitant]
     Active Substance: TADALAFIL
  7. LETAIRIS [Concomitant]
     Active Substance: AMBRISENTAN
  8. LASIX M [Concomitant]
     Active Substance: FUROSEMIDE
     Dosage: 80 MG, EVERY OTHER DAY
  9. VELETRI [Suspect]
     Active Substance: EPOPROSTENOL
     Indication: PULMONARY ARTERIAL HYPERTENSION
     Dosage: 30 NG/KG, PER MIN
     Route: 042
  10. VELETRI [Suspect]
     Active Substance: EPOPROSTENOL
     Dosage: 32 NG/KG, PER MIN
     Route: 042

REACTIONS (21)
  - Cough [Unknown]
  - Dyspnoea [Unknown]
  - Paracentesis [Unknown]
  - Ascites [Unknown]
  - Dizziness [Unknown]
  - Thyroid disorder [Unknown]
  - Dysphonia [Recovering/Resolving]
  - Anaemia [Unknown]
  - Device physical property issue [Recovered/Resolved]
  - Epistaxis [Unknown]
  - Chest pain [Unknown]
  - Pneumonia [Unknown]
  - Laryngitis [Recovering/Resolving]
  - Hypertension [Unknown]
  - Biopsy thyroid gland [Unknown]
  - Decreased appetite [Unknown]
  - Catheter placement [Recovered/Resolved]
  - Diarrhoea [Unknown]
  - Oedema peripheral [Unknown]
  - Abdominal distension [Unknown]
  - Abdominal pain [Unknown]

NARRATIVE: CASE EVENT DATE: 20161115
